FAERS Safety Report 17916084 (Version 1)
Quarter: 2020Q2

REPORT INFORMATION
  Report Type: Spontaneous
  Country: IT (occurrence: IT)
  Receive Date: 20200619
  Receipt Date: 20200619
  Transmission Date: 20200714
  Serious: Yes (Hospitalization)
  Sender: FDA-Public Use
  Company Number: IT-ELI_LILLY_AND_COMPANY-IT202005010345

PATIENT
  Sex: Female

DRUGS (2)
  1. FULVESTRANT. [Concomitant]
     Active Substance: FULVESTRANT
     Indication: PRODUCT USED FOR UNKNOWN INDICATION
     Dosage: UNK, UNKNOWN
     Route: 065
  2. VERZENIO [Suspect]
     Active Substance: ABEMACICLIB
     Indication: PRODUCT USED FOR UNKNOWN INDICATION
     Dosage: UNK, UNKNOWN
     Route: 065

REACTIONS (11)
  - Neutropenia [Unknown]
  - Hypokalaemia [Unknown]
  - Enteritis [Unknown]
  - Thrombocytopenia [Unknown]
  - Hepatic function abnormal [Not Recovered/Not Resolved]
  - Abdominal hernia [Unknown]
  - Blood creatinine increased [Unknown]
  - Electrolyte imbalance [Not Recovered/Not Resolved]
  - Anaemia [Unknown]
  - Abdominal pain [Unknown]
  - Lipase increased [Unknown]
